FAERS Safety Report 24445003 (Version 2)
Quarter: 2024Q4

REPORT INFORMATION
  Report Type: Spontaneous
  Country: JP (occurrence: JP)
  Receive Date: 20241016
  Receipt Date: 20241022
  Transmission Date: 20250115
  Serious: Yes (Other)
  Sender: MERCK
  Company Number: JP-MSD-2410JPN001224J

PATIENT
  Age: 50 Year
  Sex: Female

DRUGS (4)
  1. KEYTRUDA [Suspect]
     Active Substance: PEMBROLIZUMAB
     Indication: Triple negative breast cancer
     Dosage: UNK
     Route: 065
  2. CARBOPLATIN [Suspect]
     Active Substance: CARBOPLATIN
     Indication: Triple negative breast cancer
     Dosage: UNK
     Route: 065
  3. PACLITAXEL [Suspect]
     Active Substance: PACLITAXEL
     Indication: Triple negative breast cancer
     Dosage: UNK, QW
     Route: 065
  4. PACLITAXEL [Suspect]
     Active Substance: PACLITAXEL
     Dosage: UNK, QW
     Route: 065

REACTIONS (13)
  - Ascites [Unknown]
  - Neuropathy peripheral [Unknown]
  - Dizziness postural [Unknown]
  - Drug hypersensitivity [Unknown]
  - Pain [Unknown]
  - Anaemia [Unknown]
  - Headache [Unknown]
  - Papule [Recovering/Resolving]
  - Oropharyngeal discomfort [Recovering/Resolving]
  - Pyrexia [Unknown]
  - Dyspnoea [Unknown]
  - Cough [Unknown]
  - Nausea [Unknown]
